FAERS Safety Report 10214593 (Version 3)
Quarter: 2014Q3

REPORT INFORMATION
  Report Type: Spontaneous
  Country: JP (occurrence: JP)
  Receive Date: 20140603
  Receipt Date: 20140714
  Transmission Date: 20150326
  Serious: Yes (Hospitalization)
  Sender: FDA-Public Use
  Company Number: JP-GLAXOSMITHKLINE-B0998490A

PATIENT
  Age: 33 Year
  Sex: Female

DRUGS (9)
  1. LAMICTAL [Suspect]
     Active Substance: LAMOTRIGINE
     Indication: MOOD SWINGS
     Dosage: 100MG TWICE PER DAY
     Route: 048
  2. LAMICTAL [Suspect]
     Active Substance: LAMOTRIGINE
     Indication: SUICIDE ATTEMPT
     Route: 048
     Dates: start: 20140523
  3. LUNESTA [Concomitant]
     Active Substance: ESZOPICLONE
     Indication: SUICIDE ATTEMPT
     Route: 048
     Dates: start: 20140523
  4. SEROQUEL [Concomitant]
     Active Substance: QUETIAPINE FUMARATE
     Indication: SUICIDE ATTEMPT
     Route: 048
  5. AMOBAN [Concomitant]
     Active Substance: ZOPICLONE
     Indication: SUICIDE ATTEMPT
     Route: 048
  6. ROZEREM [Concomitant]
     Active Substance: RAMELTEON
     Indication: MOOD SWINGS
     Route: 048
  7. LENDORMIN [Concomitant]
     Active Substance: BROTIZOLAM
     Indication: SUICIDE ATTEMPT
     Route: 048
  8. ROZEREM [Concomitant]
     Active Substance: RAMELTEON
     Indication: SUICIDE ATTEMPT
     Route: 048
     Dates: start: 20140523
  9. WYPAX [Concomitant]
     Active Substance: LORAZEPAM
     Route: 048
     Dates: start: 20140524

REACTIONS (17)
  - Blood potassium decreased [Unknown]
  - Blood sodium decreased [Unknown]
  - Infection [Unknown]
  - Alanine aminotransferase increased [Unknown]
  - Suicide attempt [Recovered/Resolved]
  - C-reactive protein increased [Unknown]
  - White blood cell count increased [Unknown]
  - Agitation [Recovered/Resolved]
  - Aspartate aminotransferase increased [Unknown]
  - Overdose [Unknown]
  - Gaze palsy [Recovered/Resolved]
  - Unresponsive to stimuli [Recovered/Resolved]
  - Neutrophil count increased [Unknown]
  - Restlessness [Recovered/Resolved]
  - Screaming [Recovered/Resolved]
  - Altered state of consciousness [Recovered/Resolved]
  - Pyrexia [Unknown]

NARRATIVE: CASE EVENT DATE: 20140523
